FAERS Safety Report 6395364-6 (Version None)
Quarter: 2009Q4

REPORT INFORMATION
  Report Type: 
  Country: None (occurrence: None)
  Receive Date: 20091006
  Receipt Date: 20090923
  Transmission Date: 20100525
  Serious: Yes (Disabling, Other)
  Sender: FDA-Public Use
  Company Number: 232240K08USA

PATIENT
  Age: 56 Year
  Sex: Female
  Weight: 62 kg

DRUGS (9)
  1. REBIF [Suspect]
     Indication: MULTIPLE SCLEROSIS
     Dosage: 44 MCG, 3 IN 1 WEEKS, SUBCUTANEOUS
     Route: 058
     Dates: start: 20050701, end: 20070801
  2. REBIF [Suspect]
     Indication: MULTIPLE SCLEROSIS
     Dosage: 44 MCG, 3 IN 1 WEEKS, SUBCUTANEOUS
     Route: 058
     Dates: start: 20081215, end: 20090401
  3. QUINAPRIL HCL [Concomitant]
  4. TOPAMAX [Concomitant]
  5. PAXIL [Concomitant]
  6. AMBIEN [Concomitant]
  7. GINSENG (GINSENG /00480901/) [Concomitant]
  8. ZOLOFT [Concomitant]
  9. PROVIGIL [Concomitant]

REACTIONS (5)
  - AFFECTIVE DISORDER [None]
  - ASTHENIA [None]
  - FATIGUE [None]
  - HYPERTENSION [None]
  - RENAL FAILURE ACUTE [None]
